FAERS Safety Report 5063517-5 (Version None)
Quarter: 2006Q3

REPORT INFORMATION
  Report Type: 
  Country: None (occurrence: None)
  Receive Date: 20060727
  Receipt Date: 20060719
  Transmission Date: 20061208
  Serious: Yes (Other)
  Sender: FDA-Public Use
  Company Number: PHBS2006BR11007

PATIENT
  Age: 22 Year
  Sex: Female

DRUGS (1)
  1. METHERGINE [Suspect]

REACTIONS (3)
  - DRUG EXPOSURE DURING PREGNANCY [None]
  - HAEMORRHAGE [None]
  - MEDICATION ERROR [None]
